FAERS Safety Report 8861994 (Version 4)
Quarter: 2013Q2

REPORT INFORMATION
  Report Type: Report from Study
  Country: US (occurrence: US)
  Receive Date: 20121025
  Receipt Date: 20130612
  Transmission Date: 20140414
  Serious: Yes (Other)
  Sender: FDA-Public Use
  Company Number: US-JNJFOC-20121007916

PATIENT
  Age: 66 Year
  Sex: Female
  Weight: 68.04 kg

DRUGS (28)
  1. REMICADE [Suspect]
     Indication: RHEUMATOID ARTHRITIS
     Route: 042
     Dates: start: 2012
  2. REMICADE [Suspect]
     Indication: RHEUMATOID ARTHRITIS
     Route: 042
     Dates: start: 20130529
  3. REMICADE [Suspect]
     Indication: RHEUMATOID ARTHRITIS
     Route: 042
     Dates: start: 20130123
  4. REMICADE [Suspect]
     Indication: RHEUMATOID ARTHRITIS
     Route: 042
     Dates: start: 20120911
  5. SOLU-MEDROL [Suspect]
     Indication: RHEUMATOID ARTHRITIS
     Route: 042
     Dates: start: 201209
  6. PREDNISONE [Suspect]
     Indication: PRODUCT USED FOR UNKNOWN INDICATION
     Route: 065
  7. PREDNISONE [Suspect]
     Indication: PRODUCT USED FOR UNKNOWN INDICATION
     Route: 065
  8. PREDNISONE [Suspect]
     Indication: PRODUCT USED FOR UNKNOWN INDICATION
     Route: 065
     Dates: start: 2012
  9. PREDNISONE [Suspect]
     Indication: PRODUCT USED FOR UNKNOWN INDICATION
     Route: 065
     Dates: start: 20120911
  10. PREDNISONE [Suspect]
     Indication: RASH PRURITIC
     Route: 065
     Dates: start: 2012
  11. PREDNISONE [Suspect]
     Indication: RASH PRURITIC
     Route: 065
  12. PREDNISONE [Suspect]
     Indication: RASH PRURITIC
     Route: 065
     Dates: start: 20120911
  13. PREDNISONE [Suspect]
     Indication: RASH PRURITIC
     Route: 065
  14. METHOTREXATE [Suspect]
     Indication: RHEUMATOID ARTHRITIS
     Route: 065
     Dates: start: 201209
  15. VITAMIN B12 [Concomitant]
     Dosage: SINCE 3 MONTHS
     Route: 065
  16. ADVIL [Concomitant]
     Indication: PAIN
     Dosage: AS NECESSARY, SINCE 10 YEARS
     Route: 065
  17. DEXILANT [Concomitant]
     Indication: GASTROOESOPHAGEAL REFLUX DISEASE
     Dosage: SINCE 3 YEARS
     Route: 065
  18. PLAVIX [Concomitant]
     Indication: ATRIAL FIBRILLATION
     Route: 048
     Dates: start: 2012
  19. PLAVIX [Concomitant]
     Indication: ANTICOAGULANT THERAPY
     Route: 048
     Dates: start: 2012
  20. DILTIAZEM [Concomitant]
     Indication: BLOOD PRESSURE
     Route: 048
  21. MULTAQ [Concomitant]
     Indication: ATRIAL FIBRILLATION
     Route: 048
     Dates: start: 2008
  22. CRESTOR [Concomitant]
     Indication: ATRIAL FIBRILLATION
     Dosage: SINCE 3 YEARS
     Route: 048
  23. CRESTOR [Concomitant]
     Indication: BLOOD CHOLESTEROL
     Dosage: SINCE 3 YEARS
     Route: 048
  24. FOLIC ACID [Concomitant]
     Indication: STOMATITIS
     Dosage: SINCE 3 MONTHS
     Route: 048
  25. FOLIC ACID [Concomitant]
     Indication: STOMATITIS
     Route: 048
     Dates: start: 20120911
  26. BENADRYL [Concomitant]
     Indication: PREMEDICATION
     Route: 042
     Dates: start: 20120123
  27. PREDNISONE [Concomitant]
     Indication: RHEUMATOID ARTHRITIS
     Route: 048
     Dates: start: 201304, end: 201305
  28. PREDNISONE [Concomitant]
     Indication: RHEUMATOID ARTHRITIS
     Route: 048
     Dates: end: 201304

REACTIONS (18)
  - Vertigo positional [Not Recovered/Not Resolved]
  - Gastrooesophageal reflux disease [Not Recovered/Not Resolved]
  - Atrial fibrillation [Recovering/Resolving]
  - Eye haemorrhage [Recovering/Resolving]
  - Rash generalised [Recovered/Resolved]
  - Abdominal pain [Recovering/Resolving]
  - Rheumatoid arthritis [Recovering/Resolving]
  - Myalgia [Recovering/Resolving]
  - Arthralgia [Recovering/Resolving]
  - Back pain [Recovering/Resolving]
  - Ear pain [Recovering/Resolving]
  - Asthenia [Recovering/Resolving]
  - Hyperhidrosis [Recovered/Resolved]
  - Pruritus [Not Recovered/Not Resolved]
  - Stomatitis [Recovering/Resolving]
  - Sinusitis [Recovering/Resolving]
  - Nausea [Recovering/Resolving]
  - Fatigue [Not Recovered/Not Resolved]
